FAERS Safety Report 14225532 (Version 1)
Quarter: 2017Q4

REPORT INFORMATION
  Report Type: Spontaneous
  Country: US (occurrence: None)
  Receive Date: 20171123
  Receipt Date: 20171123
  Transmission Date: 20180321
  Serious: No
  Sender: FDA-Public Use
  Company Number: None

PATIENT
  Age: 47 Year
  Sex: Male

DRUGS (1)
  1. ODEFSEY [Suspect]
     Active Substance: EMTRICITABINE\RILPIVIRINE HYDROCHLORIDE\TENOFOVIR ALAFENAMIDE FUMARATE

REACTIONS (6)
  - Vomiting [None]
  - Nasopharyngitis [None]
  - Flatulence [None]
  - Feeling cold [None]
  - Nausea [None]
  - Abdominal distension [None]

NARRATIVE: CASE EVENT DATE: 20171121
